FAERS Safety Report 18491276 (Version 1)
Quarter: 2020Q4

REPORT INFORMATION
  Report Type: Spontaneous
  Country: US (occurrence: US)
  Receive Date: 20201111
  Receipt Date: 20201111
  Transmission Date: 20210114
  Serious: Yes (Hospitalization, Other)
  Sender: FDA-Public Use
  Company Number: US-009507513-2011USA005792

PATIENT
  Age: 63 Year
  Sex: Female
  Weight: 59 kg

DRUGS (13)
  1. BRILINTA [Suspect]
     Active Substance: TICAGRELOR
     Indication: ACUTE CORONARY SYNDROME
     Dosage: 180 MILLIGRAM, QD
     Route: 048
     Dates: start: 20160421, end: 20170427
  2. PRINIVIL [Suspect]
     Active Substance: LISINOPRIL
     Dosage: 10 MILLIGRAM, QD
     Route: 048
     Dates: start: 2004
  3. PIOGLITAZONE. [Concomitant]
     Active Substance: PIOGLITAZONE
     Indication: DIABETES MELLITUS
     Dosage: 45 MILLIGRAM, QD
     Dates: start: 2012
  4. METFORMIN [Concomitant]
     Active Substance: METFORMIN HYDROCHLORIDE
     Indication: DIABETES MELLITUS
     Dosage: 4 DOSAGE FORM, QD
     Route: 048
     Dates: start: 1998
  5. PRINIVIL [Suspect]
     Active Substance: LISINOPRIL
     Dosage: 20 MILLIGRAM, QD
     Route: 048
  6. GLIPIZIDE. [Concomitant]
     Active Substance: GLIPIZIDE
     Indication: DIABETES MELLITUS
     Dosage: 20 MILLIGRAM, QD
     Dates: start: 2001
  7. LEVOTHYROXINE SODIUM. [Concomitant]
     Active Substance: LEVOTHYROXINE SODIUM
     Indication: THYROID DISORDER
     Dosage: 0.88 MICROGRAM, QD
     Route: 048
  8. VERAPAMIL [Concomitant]
     Active Substance: VERAPAMIL HYDROCHLORIDE
     Dosage: 240 MILLIGRAM, QD
  9. ASPIRIN. [Concomitant]
     Active Substance: ASPIRIN
     Dosage: 81
     Route: 048
     Dates: start: 20160421
  10. BRILINTA [Suspect]
     Active Substance: TICAGRELOR
     Indication: STENT PLACEMENT
     Dosage: 180 MILLIGRAM, QD
     Route: 048
     Dates: start: 20160421, end: 20170427
  11. METOPROLOL TARTRATE. [Suspect]
     Active Substance: METOPROLOL TARTRATE
     Dosage: 50 MILLIGRAM, QD
     Route: 065
  12. OMEPRAZOLE. [Suspect]
     Active Substance: OMEPRAZOLE
     Indication: HERNIA
     Dosage: 20 MILLIGRAM, QD
     Route: 048
     Dates: start: 2004
  13. LOVASTATIN. [Concomitant]
     Active Substance: LOVASTATIN
     Dosage: 40 MILLIGRAM, QD

REACTIONS (11)
  - Urticaria [Unknown]
  - Neovascular age-related macular degeneration [Not Recovered/Not Resolved]
  - Ocular vascular disorder [Unknown]
  - Nausea [Unknown]
  - Meniscus injury [Unknown]
  - Product use in unapproved indication [Unknown]
  - Off label use [Unknown]
  - Dry age-related macular degeneration [Not Recovered/Not Resolved]
  - Vascular occlusion [Unknown]
  - Rash pruritic [Recovered/Resolved]
  - Hernia [Unknown]

NARRATIVE: CASE EVENT DATE: 2004
